FAERS Safety Report 7669042-7 (Version None)
Quarter: 2011Q3

REPORT INFORMATION
  Report Type: 
  Country: None (occurrence: None)
  Receive Date: 20110808
  Receipt Date: 20110801
  Transmission Date: 20111222
  Serious: Yes (Other)
  Sender: FDA-Public Use
  Company Number: US-BAYER-2011-067414

PATIENT
  Age: 27 Year
  Sex: Female

DRUGS (1)
  1. MIRENA [Suspect]
     Indication: CONTRACEPTION
     Dosage: UNK
     Route: 015
     Dates: start: 20090701

REACTIONS (7)
  - OVARIAN DISORDER [None]
  - MENSTRUATION IRREGULAR [None]
  - ECTOPIC PREGNANCY WITH INTRAUTERINE DEVICE [None]
  - AMENORRHOEA [None]
  - ABDOMINAL PAIN [None]
  - NAUSEA [None]
  - VAGINAL HAEMORRHAGE [None]
